FAERS Safety Report 8147606-4 (Version None)
Quarter: 2012Q1

REPORT INFORMATION
  Report Type: 
  Country: None (occurrence: None)
  Receive Date: 20120218
  Receipt Date: 20110419
  Transmission Date: 20120608
  Serious: No
  Sender: FDA-Public Use
  Company Number: US-ALLERGAN-1008549US

PATIENT
  Age: 58 Year
  Sex: Female

DRUGS (2)
  1. BOTOX COSMETIC [Suspect]
     Indication: SKIN WRINKLING
     Dosage: 42 UNITS, SINGLE
     Dates: start: 20100616, end: 20100616
  2. BOTOX COSMETIC [Suspect]
     Dosage: 4 UNITS, SINGLE

REACTIONS (1)
  - EYELID PTOSIS [None]
